FAERS Safety Report 7264888-1 (Version None)
Quarter: 2011Q1

REPORT INFORMATION
  Report Type: 
  Country: None (occurrence: None)
  Receive Date: 20110131
  Receipt Date: 20101116
  Transmission Date: 20110831
  Serious: Yes (Hospitalization)
  Sender: FDA-Public Use
  Company Number: US-BAYER-201035855NA

PATIENT
  Sex: Female
  Weight: 115.65 kg

DRUGS (12)
  1. YAZ [Suspect]
     Indication: VAGINAL HAEMORRHAGE
  2. YASMIN [Suspect]
     Indication: VAGINAL HAEMORRHAGE
  3. OCELLA [Suspect]
     Indication: CONTRACEPTION
     Route: 048
     Dates: start: 20080728, end: 20090504
  4. CELEBREX [Concomitant]
     Dosage: UNK
     Dates: start: 20080101, end: 20090101
  5. YASMIN [Suspect]
     Indication: CONTRACEPTION
     Route: 048
     Dates: start: 20021006, end: 20080727
  6. PHENTERMINE [Concomitant]
     Indication: WEIGHT DECREASED
     Dosage: UNK
     Dates: start: 20041101
  7. YAZ [Suspect]
     Indication: CONTRACEPTION
     Dosage: UNK UNK, UNK
     Route: 048
     Dates: start: 20060919, end: 20061201
  8. OCELLA [Suspect]
     Indication: VAGINAL HAEMORRHAGE
  9. PRILOSEC [Concomitant]
     Indication: GASTROOESOPHAGEAL REFLUX DISEASE
     Dosage: UNK
     Dates: start: 20020101
  10. METRONIDAZOLE [Concomitant]
     Dosage: UNK
     Dates: start: 20090516
  11. ACIPHEX [Concomitant]
     Indication: GASTROOESOPHAGEAL REFLUX DISEASE
     Dosage: UNK
     Dates: start: 20050101, end: 20100101
  12. CEFDINIR [Concomitant]
     Dosage: UNK
     Dates: start: 20090511

REACTIONS (1)
  - GALLBLADDER DISORDER [None]
